FAERS Safety Report 21149614 (Version 2)
Quarter: 2022Q3

REPORT INFORMATION
  Report Type: Report from Study
  Country: GB (occurrence: GB)
  Receive Date: 20220729
  Receipt Date: 20220928
  Transmission Date: 20221027
  Serious: Yes (Other)
  Sender: FDA-Public Use
  Company Number: GB-ROCHE-2283986

PATIENT
  Age: 56 Year
  Sex: Female

DRUGS (17)
  1. DOCETAXEL [Suspect]
     Active Substance: DOCETAXEL
     Indication: HER2 positive breast cancer
     Dosage: 96 MILLIGRAM, Q3W 6 CYCLES PER REGIMEN DRUG DISCONTINUED AS PLANNED NUMBER OF CYCLES COMPLETED
     Route: 042
     Dates: start: 20161116, end: 20170301
  2. PERTUZUMAB [Suspect]
     Active Substance: PERTUZUMAB
     Indication: HER2 positive breast cancer
     Dosage: 840 MILLIGRAM, Q3W LOADING DOSE, DOSE MODIFIED
     Route: 042
     Dates: start: 20161115, end: 20161115
  3. PERTUZUMAB [Suspect]
     Active Substance: PERTUZUMAB
     Dosage: 420 MILLIGRAM, Q3W 18 CYCLES PER REGIMEN
     Route: 042
     Dates: start: 20161207
  4. TRASTUZUMAB [Suspect]
     Active Substance: TRASTUZUMAB
     Indication: HER2 positive breast cancer
     Dosage: 483 MILLIGRAM LOADING DOSE, 1 CYCLE PER REGIMEN, DOSE MODIFIED
     Route: 042
     Dates: start: 20161115, end: 20161115
  5. TRASTUZUMAB [Suspect]
     Active Substance: TRASTUZUMAB
     Dosage: 357 MILLIGRAM, Q3W DOSE MODIFIED
     Route: 042
     Dates: start: 20161207, end: 20170301
  6. TRASTUZUMAB [Suspect]
     Active Substance: TRASTUZUMAB
     Dosage: 336 MILLIGRAM, Q3W MODIFIED DUE TO WEIGHT LOSS
     Route: 042
     Dates: start: 20170301, end: 20170301
  7. TRASTUZUMAB [Suspect]
     Active Substance: TRASTUZUMAB
     Dosage: 315 MILLIGRAM, Q3W MODIFIED DUE TO WEIGHT INCREASE
     Route: 042
     Dates: start: 20170322
  8. Adcal [Concomitant]
     Dosage: 1.5 GRAM, BID
     Route: 048
     Dates: start: 20130613
  9. DEXAMETHASONE [Concomitant]
     Active Substance: DEXAMETHASONE
     Dosage: 8 MILLIGRAM, BID, CHEMOTHERAPY CYCLE DAY BEFORE TREATMENT, DAY OF TREATMENT AND DAY AFTER
     Route: 048
     Dates: start: 20161229
  10. FILGRASTIM [Concomitant]
     Active Substance: FILGRASTIM
     Dosage: 300 MICROGRAM, QD, FOR 7 DAYS 24 HOURS POST CHEMOTHERAPY
     Route: 058
     Dates: start: 20161231
  11. LOPERAMIDE [Concomitant]
     Active Substance: LOPERAMIDE
     Indication: Adverse event
     Dosage: 2 MILLIGRAM, PRN
     Route: 048
     Dates: start: 20161207
  12. OMEPRAZOLE [Concomitant]
     Active Substance: OMEPRAZOLE
     Dosage: 20 MILLIGRAM, QD
     Route: 048
     Dates: start: 20161207
  13. CHLORPHENIRAMINE MALEATE [Concomitant]
     Active Substance: CHLORPHENIRAMINE MALEATE
     Dosage: 10 MILLIGRAM PRIOR TO CHEMOTHERAPY TREATMENT
     Route: 042
     Dates: start: 20161207
  14. HYDROCORTISONE [Concomitant]
     Active Substance: HYDROCORTISONE
     Dosage: 100 MILLIGRAM PRIOR TO CHEMOTHERAPY TREATMENT
     Route: 042
     Dates: start: 20161207
  15. LETROZOLE [Concomitant]
     Active Substance: LETROZOLE
     Dosage: 2.5 MILLIGRAM, QD
     Route: 048
     Dates: start: 20130612
  16. METOCLOPRAMIDE [Concomitant]
     Active Substance: METOCLOPRAMIDE
     Dosage: 10 MILLIGRAM, TID
     Route: 048
     Dates: start: 20161207
  17. ONDANSETRON [Concomitant]
     Active Substance: ONDANSETRON
     Dosage: 8 MILLIGRAM PRIOR TO CHEMOTHERAPY
     Route: 042
     Dates: start: 20161207

REACTIONS (5)
  - Amnesia [Unknown]
  - Cerebral small vessel ischaemic disease [Not Recovered/Not Resolved]
  - Swelling [Recovered/Resolved]
  - Syncope [Recovered/Resolved]
  - Pruritus [Recovered/Resolved]

NARRATIVE: CASE EVENT DATE: 20190117
